FAERS Safety Report 8735313 (Version 3)
Quarter: 2013Q1

REPORT INFORMATION
  Report Type: Spontaneous
  Country: JP (occurrence: JP)
  Receive Date: 20120822
  Receipt Date: 20130315
  Transmission Date: 20140127
  Serious: Yes (Hospitalization)
  Sender: FDA-Public Use
  Company Number: JP-AMGEN-JPNSP2012052312

PATIENT
  Age: 82 Year
  Sex: Female
  Weight: 54 kg

DRUGS (25)
  1. ARANESP [Suspect]
     Indication: NEPHROGENIC ANAEMIA
     Dosage: 60 MUG, UNK
     Route: 058
     Dates: start: 20111017
  2. ARANESP [Suspect]
     Dosage: 90 MUG, QD
     Route: 058
     Dates: start: 20120206
  3. ARANESP [Suspect]
     Dosage: 120 MUG, QD
     Route: 058
     Dates: start: 20120326, end: 20120326
  4. ARANESP [Suspect]
     Dosage: 120 MUG, QD
     Route: 058
     Dates: start: 20120409, end: 20120409
  5. ARANESP [Suspect]
     Dosage: 120 MUG, QD
     Route: 058
     Dates: start: 20120514, end: 20120514
  6. ARANESP [Suspect]
     Dosage: 120 MUG, QD
     Route: 058
     Dates: start: 20120619, end: 20120619
  7. ARANESP [Suspect]
     Dosage: 60 MUG, 1X/WEEK
     Route: 058
     Dates: start: 20120723
  8. ALFAROL [Concomitant]
     Route: 048
     Dates: start: 200602, end: 20110613
  9. ALFAROL [Concomitant]
     Dosage: 1 MUG, QD
     Route: 048
     Dates: start: 200602, end: 20110613
  10. AMARYL [Concomitant]
     Route: 048
     Dates: start: 200602, end: 20110808
  11. AMARYL [Concomitant]
     Dosage: 1 MG, TID
     Route: 048
     Dates: start: 200602, end: 20110808
  12. TANATRIL [Concomitant]
     Route: 048
     Dates: start: 200602
  13. TANATRIL [Concomitant]
     Dosage: 2.5 MG, BID
     Route: 048
     Dates: start: 200602
  14. GASTER [Concomitant]
     Route: 048
     Dates: start: 200602
  15. GASTER [Concomitant]
     Dosage: 20 UNK, QD
     Route: 048
     Dates: start: 200602
  16. MELBIN                             /00082702/ [Concomitant]
     Route: 048
     Dates: start: 200602, end: 20110808
  17. MELBIN                             /00082702/ [Concomitant]
     Dosage: 250 MG, BID
     Route: 048
     Dates: start: 200602, end: 20110808
  18. FUROSEMIDE [Concomitant]
     Route: 048
     Dates: start: 200602
  19. FUROSEMIDE [Concomitant]
     Dosage: 20 MG, QD
     Route: 048
     Dates: start: 200602
  20. AMLODIN [Concomitant]
     Route: 048
     Dates: start: 200602
  21. AMLODIN [Concomitant]
     Dosage: 5 MG, QD
     Route: 048
     Dates: start: 200602
  22. LIVALO [Concomitant]
     Route: 048
     Dates: start: 200602
  23. LIVALO [Concomitant]
     Dosage: 2 MG, QD
     Route: 048
     Dates: start: 200602
  24. NESINA [Concomitant]
     Route: 048
     Dates: start: 20110809
  25. NESINA [Concomitant]
     Dosage: 6.25 MG, QD
     Route: 048
     Dates: start: 20110809

REACTIONS (1)
  - Aplasia pure red cell [Recovering/Resolving]
